FAERS Safety Report 5164615-8 (Version None)
Quarter: 2006Q4

REPORT INFORMATION
  Report Type: 
  Country: None (occurrence: None)
  Receive Date: 20061205
  Receipt Date: 20061127
  Transmission Date: 20070319
  Serious: Yes (Hospitalization)
  Sender: FDA-Public Use
  Company Number: 2006SE06371

PATIENT
  Age: 85 Year
  Sex: Male
  Weight: 78 kg

DRUGS (6)
  1. KENZEN [Suspect]
     Indication: HYPERTENSION
     Route: 048
  2. EUPHON [Suspect]
     Indication: DRUG USE FOR UNKNOWN INDICATION
     Route: 048
     Dates: start: 20060821, end: 20060821
  3. TRIMETAZIDINE [Suspect]
     Indication: DRUG USE FOR UNKNOWN INDICATION
     Route: 048
  4. FLUINDIONE [Suspect]
     Indication: PROPHYLAXIS
     Route: 048
  5. BISOPROLOL FUMARATE [Suspect]
     Indication: HYPERTENSION
     Route: 048
  6. ACETAMINOPHEN [Suspect]
     Indication: DRUG USE FOR UNKNOWN INDICATION
     Route: 048

REACTIONS (2)
  - DYSPHONIA [None]
  - LARYNGEAL OEDEMA [None]
